FAERS Safety Report 4433974-3 (Version None)
Quarter: 2004Q3

REPORT INFORMATION
  Report Type: 
  Country: None (occurrence: None)
  Receive Date: 20040825
  Receipt Date: 20040825
  Transmission Date: 20050211
  Serious: Yes (Hospitalization)
  Sender: FDA-Public Use
  Company Number: None

PATIENT
  Age: 43 Year
  Sex: Male
  Weight: 82.5547 kg

DRUGS (2)
  1. IRINOTECAN [Suspect]
     Indication: OVARIAN CANCER
     Dosage: 85 MG/M2 2 X 3 WKS IV
     Route: 042
     Dates: start: 20040329, end: 20040802
  2. CAPECITABINE [Suspect]
     Indication: OVARIAN CANCER
     Dosage: 1500 MG/M2 1-14 DAYS ORAL
     Route: 048
     Dates: start: 20040329, end: 20040808

REACTIONS (2)
  - CHEST PAIN [None]
  - DISEASE PROGRESSION [None]
